FAERS Safety Report 17556311 (Version 4)
Quarter: 2020Q2

REPORT INFORMATION
  Report Type: Report from Study
  Country: US (occurrence: US)
  Receive Date: 20200318
  Receipt Date: 20200506
  Transmission Date: 20200713
  Serious: No
  Sender: FDA-Public Use
  Company Number: NVSC2020US075405

PATIENT
  Sex: Female

DRUGS (2)
  1. COSENTYX [Suspect]
     Active Substance: SECUKINUMAB
     Indication: PSORIATIC ARTHROPATHY
     Dosage: 300 MG, UNKNOWN
     Route: 058
     Dates: start: 202001
  2. COSENTYX [Suspect]
     Active Substance: SECUKINUMAB
     Indication: PSORIASIS
     Dosage: UNKNOWN
     Route: 065
     Dates: start: 202001

REACTIONS (4)
  - Injection site pain [Unknown]
  - Therapeutic response decreased [Not Recovered/Not Resolved]
  - Pain [Unknown]
  - Injection site bruising [Not Recovered/Not Resolved]
